FAERS Safety Report 19189268 (Version 1)
Quarter: 2021Q2

REPORT INFORMATION
  Report Type: Report from Study
  Country: US (occurrence: US)
  Receive Date: 20210428
  Receipt Date: 20210428
  Transmission Date: 20210717
  Serious: Yes (Other)
  Sender: FDA-Public Use
  Company Number: US-JNJFOC-20210438796

PATIENT
  Age: 74 Year
  Sex: Female

DRUGS (2)
  1. SPRAVATO [Suspect]
     Active Substance: ESKETAMINE
     Indication: DEPRESSION
     Dosage: 18 DOSES
     Dates: start: 20200710, end: 20200929
  2. SPRAVATO [Suspect]
     Active Substance: ESKETAMINE
     Dosage: 6 DOSES
     Dates: start: 20201006, end: 20201026

REACTIONS (1)
  - Cardiac disorder [Unknown]

NARRATIVE: CASE EVENT DATE: 20210419
